FAERS Safety Report 10291580 (Version 2)
Quarter: 2014Q3

REPORT INFORMATION
  Report Type: Spontaneous
  Country: GB (occurrence: GB)
  Receive Date: 20140710
  Receipt Date: 20140710
  Transmission Date: 20150326
  Serious: Yes (Disabling, Other)
  Sender: FDA-Public Use
  Company Number: ALCN2006GB001022

PATIENT
  Age: 67 Year
  Sex: Female

DRUGS (2)
  1. TIMOLOL [Suspect]
     Active Substance: TIMOLOL
     Dosage: UNK
     Route: 047
     Dates: start: 20060325
  2. LATANOPROST. [Concomitant]
     Active Substance: LATANOPROST
     Dosage: UNK
     Route: 047

REACTIONS (2)
  - Deafness unilateral [Not Recovered/Not Resolved]
  - Dizziness [Not Recovered/Not Resolved]

NARRATIVE: CASE EVENT DATE: 200603
